FAERS Safety Report 8227152-X (Version None)
Quarter: 2012Q1

REPORT INFORMATION
  Report Type: 
  Country: None (occurrence: None)
  Receive Date: 20120322
  Receipt Date: 20120313
  Transmission Date: 20120608
  Serious: Yes (Other)
  Sender: FDA-Public Use
  Company Number: GB-JNJFOC-20120107424

PATIENT
  Sex: Female

DRUGS (1)
  1. RISPERDAL CONSTA [Suspect]
     Indication: PRODUCT USED FOR UNKNOWN INDICATION
     Route: 030

REACTIONS (7)
  - LOSS OF CONSCIOUSNESS [None]
  - ASTHENIA [None]
  - INCONTINENCE [None]
  - RENAL IMPAIRMENT [None]
  - GASTRIC INFECTION [None]
  - ABDOMINAL DISTENSION [None]
  - GINGIVAL SWELLING [None]
